FAERS Safety Report 13456352 (Version 1)
Quarter: 2017Q2

REPORT INFORMATION
  Report Type: Spontaneous
  Country: US (occurrence: US)
  Receive Date: 20170418
  Receipt Date: 20170418
  Transmission Date: 20170830
  Serious: Yes (Other)
  Sender: FDA-Public Use
  Company Number: US-PFIZER INC-2017163064

PATIENT
  Age: 21 Year
  Sex: Female
  Weight: 62.5 kg

DRUGS (1)
  1. METHOTREXATE SODIUM. [Suspect]
     Active Substance: METHOTREXATE SODIUM
     Indication: ACUTE LYMPHOCYTIC LEUKAEMIA
     Dosage: UNK
     Route: 037
     Dates: start: 20110308, end: 20130621

REACTIONS (8)
  - Streptococcal bacteraemia [Unknown]
  - Proctitis [Unknown]
  - Campylobacter infection [Unknown]
  - Leukoencephalopathy [Unknown]
  - Fungaemia [Unknown]
  - Escherichia urinary tract infection [Unknown]
  - Osteonecrosis [Unknown]
  - Atrial thrombosis [Unknown]

NARRATIVE: CASE EVENT DATE: 20110420
